FAERS Safety Report 10582481 (Version 2)
Quarter: 2014Q4

REPORT INFORMATION
  Report Type: Spontaneous
  Country: KR (occurrence: KR)
  Receive Date: 20141113
  Receipt Date: 20141113
  Transmission Date: 20150529
  Serious: Yes (Death)
  Sender: FDA-Public Use
  Company Number: KR-ASTRAZENECA-2014SE71827

PATIENT
  Age: 60 Year
  Sex: Male
  Weight: 64 kg

DRUGS (5)
  1. ASPIRIN. [Concomitant]
     Active Substance: ASPIRIN
     Indication: PERCUTANEOUS CORONARY INTERVENTION
     Dates: start: 20140916, end: 20140917
  2. ASPIRIN. [Concomitant]
     Active Substance: ASPIRIN
     Indication: ANGINA UNSTABLE
     Dates: start: 20140916, end: 20140917
  3. ASPIRIN. [Concomitant]
     Active Substance: ASPIRIN
     Indication: ANGINA UNSTABLE
     Dates: start: 201409
  4. ASPIRIN. [Concomitant]
     Active Substance: ASPIRIN
     Indication: PERCUTANEOUS CORONARY INTERVENTION
     Dates: start: 201409
  5. BRILINTA [Suspect]
     Active Substance: TICAGRELOR
     Route: 048
     Dates: start: 20140916, end: 20140917

REACTIONS (3)
  - Gastrointestinal haemorrhage [Fatal]
  - Hypotension [Fatal]
  - Haemoglobin decreased [Fatal]

NARRATIVE: CASE EVENT DATE: 201409
